FAERS Safety Report 16266521 (Version 1)
Quarter: 2019Q2

REPORT INFORMATION
  Report Type: Spontaneous
  Country: US (occurrence: US)
  Receive Date: 20190502
  Receipt Date: 20190502
  Transmission Date: 20190711
  Serious: No
  Sender: FDA-Public Use
  Company Number: US-PERNIX THERAPEUTICS-US-2018PER001672

PATIENT

DRUGS (2)
  1. DIMENHYDRINATE. [Concomitant]
     Active Substance: DIMENHYDRINATE
     Indication: PRODUCT USED FOR UNKNOWN INDICATION
     Dosage: 25 MG, QD (BEDTIME)
  2. SILENOR [Suspect]
     Active Substance: DOXEPIN HYDROCHLORIDE
     Indication: INSOMNIA
     Dosage: 3 MG, QD (AT BEDTIME)
     Route: 048
     Dates: start: 20180421

REACTIONS (7)
  - Dysuria [Unknown]
  - Fatigue [Unknown]
  - Amnesia [Unknown]
  - Insomnia [Recovering/Resolving]
  - Discomfort [Unknown]
  - Dry mouth [Unknown]
  - Tinnitus [Unknown]

NARRATIVE: CASE EVENT DATE: 201804
